FAERS Safety Report 11383891 (Version 1)
Quarter: 2015Q3

REPORT INFORMATION
  Report Type: Spontaneous
  Country: US (occurrence: US)
  Receive Date: 20150815
  Receipt Date: 20150815
  Transmission Date: 20151125
  Serious: No
  Sender: FDA-Public Use
  Company Number: US-B.I. PHARMACEUTICALS,INC./RIDGEFIELD-2015-BI-42014BP

PATIENT
  Age: 59 Year
  Sex: Male
  Weight: 79 kg

DRUGS (3)
  1. SYMBICORT [Concomitant]
     Active Substance: BUDESONIDE\FORMOTEROL FUMARATE DIHYDRATE
     Indication: DYSPNOEA
     Dosage: DOSE PER APPLICATION: 160/4.5; DAILY DOSE: 640/18
     Route: 055
  2. OFEV [Suspect]
     Active Substance: NINTEDANIB
     Indication: IDIOPATHIC PULMONARY FIBROSIS
     Dosage: 300 MG
     Route: 048
     Dates: start: 20150221, end: 20150530
  3. OFEV [Suspect]
     Active Substance: NINTEDANIB
     Dosage: 300 MG
     Route: 048
     Dates: start: 20150626

REACTIONS (1)
  - Oedema peripheral [Not Recovered/Not Resolved]

NARRATIVE: CASE EVENT DATE: 20150720
